FAERS Safety Report 17115703 (Version 1)
Quarter: 2019Q4

REPORT INFORMATION
  Report Type: Spontaneous
  Country: US (occurrence: US)
  Receive Date: 20191205
  Receipt Date: 20191205
  Transmission Date: 20200122
  Serious: Yes (Other)
  Sender: FDA-Public Use
  Company Number: US-ELI_LILLY_AND_COMPANY-US201911012714

PATIENT
  Age: 69 Year
  Sex: Female

DRUGS (1)
  1. FORTEO [Suspect]
     Active Substance: TERIPARATIDE
     Indication: OSTEOPOROSIS
     Dosage: UNK UNK, UNKNOWN
     Route: 065
     Dates: start: 201905, end: 201908

REACTIONS (5)
  - Pain [Unknown]
  - Pharyngeal haemorrhage [Unknown]
  - Ill-defined disorder [Unknown]
  - Epistaxis [Recovered/Resolved]
  - Bone pain [Recovered/Resolved]
